FAERS Safety Report 12929947 (Version 1)
Quarter: 2016Q4

REPORT INFORMATION
  Report Type: Spontaneous
  Country: JP (occurrence: JP)
  Receive Date: 20161110
  Receipt Date: 20161110
  Transmission Date: 20170207
  Serious: Yes (Other)
  Sender: FDA-Public Use
  Company Number: JP-PFIZER INC-2016424720

PATIENT
  Age: 76 Year
  Sex: Male
  Weight: 82 kg

DRUGS (15)
  1. LYRICA [Suspect]
     Active Substance: PREGABALIN
     Dosage: 150 MG, DAILY
     Route: 048
     Dates: start: 20160822, end: 20160828
  2. NOVAMIN [Concomitant]
     Active Substance: PROCHLORPERAZINE MALEATE
     Indication: PROPHYLAXIS OF NAUSEA AND VOMITING
     Dosage: 10 MG, 2X/DAY
     Route: 048
     Dates: start: 20160822, end: 20160914
  3. SENNOSIDE [Concomitant]
     Active Substance: SENNOSIDES
     Indication: CONSTIPATION
     Dosage: 24 MG, DAILY
     Route: 048
     Dates: start: 20160822
  4. MAGMITT [Concomitant]
     Active Substance: MAGNESIUM OXIDE
     Indication: CONSTIPATION
     Dosage: 500 MG, 3X/DAY
     Route: 048
     Dates: start: 20160822
  5. METGLUCO [Concomitant]
     Active Substance: METFORMIN HYDROCHLORIDE
     Dosage: 250 MG, DAILY
     Route: 048
  6. GASLON [Concomitant]
     Active Substance: IRSOGLADINE MALEATE
     Dosage: 4 MG, 1X/DAY
     Route: 048
  7. DIOVAN [Concomitant]
     Active Substance: VALSARTAN
     Dosage: 80 MG, 1X/DAY
     Route: 048
  8. LYRICA [Suspect]
     Active Substance: PREGABALIN
     Indication: NEURALGIA
     Dosage: 300 MG, DAILY
     Route: 048
     Dates: start: 20160622, end: 20160821
  9. DEPAS [Concomitant]
     Active Substance: ETIZOLAM
     Dosage: 0.5 MG, DAILY
     Route: 048
  10. TRAMAL [Concomitant]
     Active Substance: TRAMADOL
     Indication: NEURALGIA
     Dosage: UNK
     Route: 048
     Dates: start: 201606, end: 20160822
  11. NIFEDIPINE. [Concomitant]
     Active Substance: NIFEDIPINE
     Dosage: 40 MG, DAILY
     Route: 048
  12. TICLOPIDINE HYDROCHLORIDE. [Concomitant]
     Active Substance: TICLOPIDINE HYDROCHLORIDE
     Dosage: 100 MG, DAILY
     Route: 048
  13. LOXONIN [Concomitant]
     Active Substance: LOXOPROFEN SODIUM
     Dosage: 60 MG, 2X/DAY
     Route: 048
  14. BEZAFIBRATE [Concomitant]
     Active Substance: BEZAFIBRATE
     Dosage: 200 MG, 1X/DAY
     Route: 048
  15. TRAMAL [Concomitant]
     Active Substance: TRAMADOL
     Dosage: 100 MG, 3X/DAY
     Route: 048
     Dates: start: 20160822

REACTIONS (3)
  - Weight increased [Recovering/Resolving]
  - Oedema [Recovering/Resolving]
  - Respiratory distress [Unknown]

NARRATIVE: CASE EVENT DATE: 20160822
